FAERS Safety Report 19067105 (Version 1)
Quarter: 2021Q1

REPORT INFORMATION
  Report Type: Spontaneous
  Country: US (occurrence: US)
  Receive Date: 20210329
  Receipt Date: 20210329
  Transmission Date: 20210420
  Serious: No
  Sender: FDA-Public Use
  Company Number: NVSC2021US067754

PATIENT
  Sex: Female

DRUGS (1)
  1. XIIDRA [Suspect]
     Active Substance: LIFITEGRAST
     Indication: PRODUCT USED FOR UNKNOWN INDICATION
     Dosage: BID (1 PER EYE X2)
     Route: 065

REACTIONS (4)
  - Vision blurred [Unknown]
  - Dysgeusia [Unknown]
  - Halo vision [Unknown]
  - Eye irritation [Unknown]
